FAERS Safety Report 10963508 (Version 1)
Quarter: 2015Q1

REPORT INFORMATION
  Report Type: Report from Study
  Country: CA (occurrence: None)
  Receive Date: 20150326
  Receipt Date: 20150326
  Transmission Date: 20150721
  Serious: Yes (Hospitalization)
  Sender: FDA-Public Use
  Company Number: 2792570

PATIENT
  Age: 40 Year
  Sex: Male

DRUGS (3)
  1. FLOLAN [Suspect]
     Active Substance: EPOPROSTENOL SODIUM
     Indication: PULMONARY ARTERIAL HYPERTENSION
     Dosage: 45 MG MILLIGRAM(S), UNKNOWN, PARENTERAL ?
     Route: 051
  2. MANNITOL. [Suspect]
     Active Substance: MANNITOL
     Indication: PULMONARY ARTERIAL HYPERTENSION
     Dosage: NOT REPORTED, UNKNOWN, PARENTERAL ??
     Route: 051
  3. SODIUM CHLORIDE. [Suspect]
     Active Substance: SODIUM CHLORIDE
     Indication: PULMONARY ARTERIAL HYPERTENSION
     Dosage: NOT REPORTED, UNKNOWN, PARENTERAL
     Route: 051

REACTIONS (7)
  - Viral infection [None]
  - Influenza like illness [None]
  - Oxygen saturation decreased [None]
  - Dehydration [None]
  - Arthralgia [None]
  - Cough [None]
  - Pyrexia [None]
